FAERS Safety Report 25131273 (Version 1)
Quarter: 2025Q1

REPORT INFORMATION
  Report Type: Report from Study
  Country: FR (occurrence: FR)
  Receive Date: 20250327
  Receipt Date: 20250327
  Transmission Date: 20250409
  Serious: Yes (Hospitalization)
  Sender: ALNYLAM PHARMACEUTICALS
  Company Number: FR-ALNYLAM PHARMACEUTICALS, INC.-ALN-2025-002070

PATIENT

DRUGS (1)
  1. AMVUTTRA [Suspect]
     Active Substance: VUTRISIRAN
     Indication: Product used for unknown indication
     Dosage: 25 MILLIGRAM (1 PRE-FILLED SYRINGE), Q3M
     Route: 058
     Dates: start: 20250106, end: 20250106

REACTIONS (2)
  - Hypotension [Unknown]
  - Erysipelas [Unknown]

NARRATIVE: CASE EVENT DATE: 20250315
